FAERS Safety Report 8100124 (Version 7)
Quarter: 2012Q4

REPORT INFORMATION
  Report Type: 
  Country: US (occurrence: US)
  Receive Date: 20110822
  Receipt Date: 20120918
  Transmission Date: 20130627
  Serious: Yes (Life-Threatening, Hospitalization, Disabling, Other)
  Sender: FDA-Public Use
  Company Number: US-MPIJNJ-2011-03560

PATIENT
  Age: 61 Year
  Sex: Male
  Weight: 92.52 kg

DRUGS (7)
  1. VELCADE [Suspect]
     Indication: MULTIPLE MYELOMA
     Dosage: 1.3 mg, Cyclic
     Route: 042
     Dates: start: 20110307, end: 20110425
  2. ADRIAMYCIN                         /00330901/ [Suspect]
     Indication: MULTIPLE MYELOMA
     Dosage: 20 mg, Cyclic
     Route: 042
     Dates: start: 20110307, end: 20110425
  3. PAMIDRONATE [Suspect]
     Indication: METASTASIS
     Dosage: 90 mg, Cyclic
     Route: 042
     Dates: start: 20110307, end: 20110425
  4. ALOXI [Concomitant]
     Indication: NAUSEA
     Dosage: 0.25 mg, Cyclic
     Dates: start: 20110307, end: 20110425
  5. KYTRIL                             /01178101/ [Concomitant]
     Indication: NAUSEA
     Dosage: 1 mg, Cyclic
     Dates: start: 20110307, end: 20110425
  6. PHENERGAN                          /00033001/ [Concomitant]
     Indication: NAUSEA
     Dosage: 12.5 mg, Cyclic
     Dates: start: 20110307, end: 20110425
  7. DECADRON [Suspect]
     Indication: NAUSEA
     Dosage: 40 mg, Cyclic
     Dates: start: 20110307, end: 20110523

REACTIONS (8)
  - Hyperglycaemia [Recovered/Resolved]
  - Diabetes mellitus [Recovered/Resolved]
  - Joint effusion [Recovered/Resolved]
  - Deep vein thrombosis [Recovered/Resolved]
  - Back pain [Recovered/Resolved]
  - Renal failure [Recovered/Resolved]
  - Pain in extremity [Recovered/Resolved]
  - Anaemia [Recovered/Resolved]
